FAERS Safety Report 7136883-4 (Version None)
Quarter: 2010Q4

REPORT INFORMATION
  Report Type: 
  Country: None (occurrence: None)
  Receive Date: 20101206
  Receipt Date: 20081125
  Transmission Date: 20110411
  Serious: Yes (Death, Hospitalization)
  Sender: FDA-Public Use
  Company Number: US-ACTELION-A-NJ2008-21927

PATIENT

DRUGS (2)
  1. ILOPROST INHALATION SOLUTION 5UG US [Suspect]
     Indication: PULMONARY ARTERIAL HYPERTENSION
     Dosage: 5 UG, UNK
     Route: 055
     Dates: start: 20080908
  2. REVATIO [Concomitant]

REACTIONS (4)
  - CHEST DISCOMFORT [None]
  - CONDITION AGGRAVATED [None]
  - DEATH [None]
  - HEADACHE [None]
